FAERS Safety Report 6998614-8 (Version None)
Quarter: 2010Q3

REPORT INFORMATION
  Report Type: 
  Country: None (occurrence: None)
  Receive Date: 20100920
  Receipt Date: 20091216
  Transmission Date: 20110219
  Serious: Yes (Other)
  Sender: FDA-Public Use
  Company Number: US-ASTRAZENECA-2006UW26446

PATIENT
  Age: 16879 Day
  Sex: Female
  Weight: 72.6 kg

DRUGS (11)
  1. SEROQUEL [Suspect]
     Indication: BIPOLAR DISORDER
     Dosage: 50-1200 MG
     Route: 048
     Dates: start: 20010817
  2. SEROQUEL [Suspect]
     Indication: DEPRESSION
     Dosage: 50-1200 MG
     Route: 048
     Dates: start: 20010817
  3. SEROQUEL [Suspect]
     Dosage: EVERY DAY
     Route: 048
  4. SEROQUEL [Suspect]
     Dosage: EVERY DAY
     Route: 048
  5. THORAZINE [Concomitant]
  6. LIPITOR [Concomitant]
     Dosage: 10-20 MG
     Dates: start: 20050110
  7. XANAX [Concomitant]
     Dosage: 1-6 MG
     Route: 048
     Dates: start: 20000825
  8. ZOLOFT [Concomitant]
     Dosage: 25-120 MG
     Route: 048
     Dates: start: 20010817
  9. LOPRESSOR [Concomitant]
     Dates: start: 20050920
  10. EFFEXOR XR [Concomitant]
     Dates: start: 20050913
  11. PREDNISONE [Concomitant]
     Route: 048
     Dates: start: 20010413

REACTIONS (6)
  - DIABETES MELLITUS [None]
  - DIABETES MELLITUS INADEQUATE CONTROL [None]
  - DIABETIC KETOACIDOSIS [None]
  - INSULIN-REQUIRING TYPE 2 DIABETES MELLITUS [None]
  - TYPE 1 DIABETES MELLITUS [None]
  - TYPE 2 DIABETES MELLITUS [None]
